FAERS Safety Report 10085258 (Version 2)
Quarter: 2014Q2

REPORT INFORMATION
  Report Type: Spontaneous
  Country: US (occurrence: US)
  Receive Date: 20140417
  Receipt Date: 20140417
  Transmission Date: 20141212
  Serious: No
  Sender: FDA-Public Use
  Company Number: US-GE HEALTHCARE MEDICAL DIAGNOSTICS-VISP-PR-1402S-0088

PATIENT
  Age: 62 Year
  Sex: Male
  Weight: 123.49 kg

DRUGS (3)
  1. VISIPAQUE [Suspect]
     Indication: GASTROINTESTINAL DISORDER
     Route: 042
     Dates: start: 20140227, end: 20140227
  2. VISIPAQUE [Suspect]
     Indication: DIAGNOSTIC PROCEDURE
  3. VISIPAQUE [Suspect]
     Indication: THERAPEUTIC PROCEDURE

REACTIONS (3)
  - Flushing [Recovered/Resolved]
  - Urticaria [Recovered/Resolved]
  - Rash [Unknown]
